FAERS Safety Report 5926082-3 (Version None)
Quarter: 2008Q4

REPORT INFORMATION
  Report Type: 
  Country: None (occurrence: None)
  Receive Date: 20081016
  Receipt Date: 20081008
  Transmission Date: 20090506
  Serious: Yes (Disabling, Other)
  Sender: FDA-Public Use
  Company Number: 2008JP004878

PATIENT
  Age: 41 Year
  Sex: Female
  Weight: 57.2 kg

DRUGS (6)
  1. PROGRAF [Suspect]
     Indication: ALLOGENIC BONE MARROW TRANSPLANTATION THERAPY
     Dosage: 1.16 MG, CONTINUOUS, IV DRIP
     Route: 041
     Dates: start: 20080124, end: 20080320
  2. FLUID (BARIUM SULFATE) INJECTION [Suspect]
  3. DEMETHYLATING AGENT FORMULATION UNKNOWN [Concomitant]
  4. BROACT (CEFPIROME SULFATE) INJECTION [Concomitant]
  5. FOSCAVIR [Concomitant]
  6. FUNGUARD (MICAFUNGIN) INJECTION [Concomitant]

REACTIONS (10)
  - BONE MARROW TRANSPLANT [None]
  - CYTOMEGALOVIRUS VIRAEMIA [None]
  - FEBRILE NEUTROPENIA [None]
  - FLUID RETENTION [None]
  - GENERALISED OEDEMA [None]
  - HYPOKALAEMIA [None]
  - HYPOTHYROIDISM [None]
  - MALAISE [None]
  - SECONDARY HYPOTHYROIDISM [None]
  - SINUS BRADYCARDIA [None]
